FAERS Safety Report 8032756-3 (Version None)
Quarter: 2012Q1

REPORT INFORMATION
  Report Type: 
  Country: None (occurrence: None)
  Receive Date: 20120110
  Receipt Date: 20120103
  Transmission Date: 20120608
  Serious: Yes (Hospitalization, Other)
  Sender: FDA-Public Use
  Company Number: US-BAYER-2011-062548

PATIENT
  Age: 39 Year
  Sex: Female
  Weight: 62.585 kg

DRUGS (5)
  1. LORATADINE [Concomitant]
     Dosage: 10 MG, UNK
     Route: 048
  2. PROVIGIL [Concomitant]
     Dosage: 200 MG, UNK
     Route: 048
  3. FLUTICASONE PROPIONATE [Concomitant]
     Dosage: 0.05 %, UNK
     Route: 045
  4. YASMIN [Suspect]
     Indication: CONTRACEPTION
     Dosage: UNK
     Dates: start: 20060201, end: 20100101
  5. WELLBUTRIN SR [Concomitant]
     Indication: DEPRESSION
     Dosage: 150 MG, QD
     Route: 048
     Dates: start: 20000101, end: 20100101

REACTIONS (9)
  - VOMITING [None]
  - DYSPEPSIA [None]
  - EMOTIONAL DISTRESS [None]
  - MUSCULOSKELETAL CHEST PAIN [None]
  - GALLBLADDER DISORDER [None]
  - NAUSEA [None]
  - CHOLECYSTITIS ACUTE [None]
  - ANXIETY [None]
  - CHEST PAIN [None]
